FAERS Safety Report 19015442 (Version 1)
Quarter: 2021Q1

REPORT INFORMATION
  Report Type: Spontaneous
  Country: DE (occurrence: DE)
  Receive Date: 20210316
  Receipt Date: 20210316
  Transmission Date: 20210420
  Serious: Yes (Hospitalization, Other)
  Sender: FDA-Public Use
  Company Number: DE-TEVA-2021-DE-1888114

PATIENT
  Age: 96 Year
  Sex: Female
  Weight: 65 kg

DRUGS (5)
  1. CLOZAPIN 25 MG [Suspect]
     Active Substance: CLOZAPINE
     Dosage: 12.5MG?6MG?25MGFOR ABOUT 10 YEARS:UNIT DOSE:33.5MILLIGRAM
     Dates: start: 2011, end: 202101
  2. CLOZAPIN?NEURAXPHARM 25MG [Suspect]
     Active Substance: CLOZAPINE
     Dates: start: 20210116
  3. MOVICOL [Concomitant]
     Active Substance: POLYETHYLENE GLYCOL 3350\POTASSIUM CHLORIDE\SODIUM BICARBONATE\SODIUM CHLORIDE
     Indication: DYSPEPSIA
     Dosage: 1 DOSAGE FORMS DAILY; 0?0?1, LONG?TERM MEDICATION
  4. ASS 100 [Concomitant]
     Active Substance: ASPIRIN
     Indication: CEREBROVASCULAR ACCIDENT PROPHYLAXIS
     Dosage: 1 DOSAGE FORMS DAILY; 1?0?0:USE FOR ABOUT 10 YEARS
     Dates: start: 2011
  5. KEPPRA [Concomitant]
     Active Substance: LEVETIRACETAM
     Indication: EPILEPSY
     Dates: start: 202101, end: 202101

REACTIONS (6)
  - Dysarthria [Unknown]
  - Altered state of consciousness [Unknown]
  - Monoplegia [Unknown]
  - Dysphagia [Unknown]
  - Pneumonia aspiration [Recovered/Resolved]
  - Brain stem ischaemia [Unknown]

NARRATIVE: CASE EVENT DATE: 202101
